FAERS Safety Report 8235441-8 (Version None)
Quarter: 2012Q1

REPORT INFORMATION
  Report Type: 
  Country: None (occurrence: None)
  Receive Date: 20120322
  Receipt Date: 20120315
  Transmission Date: 20120608
  Serious: Yes (Hospitalization, Other)
  Sender: FDA-Public Use
  Company Number: CL-397-2012

PATIENT
  Age: 17 Year
  Sex: Female

DRUGS (1)
  1. HALOPERIDOL [Suspect]
     Indication: SUICIDE ATTEMPT
     Dosage: 50MG ONCE ORAL
     Route: 048

REACTIONS (7)
  - OROMANDIBULAR DYSTONIA [None]
  - JOINT DISLOCATION [None]
  - SUICIDE ATTEMPT [None]
  - OVERDOSE [None]
  - HYPOTENSION [None]
  - ANXIETY [None]
  - SINUS TACHYCARDIA [None]
